FAERS Safety Report 11272241 (Version 1)
Quarter: 2015Q2

REPORT INFORMATION
  Report Type: Spontaneous
  Country: US (occurrence: None)
  Receive Date: 20150625
  Receipt Date: 20150625
  Transmission Date: 20150821
  Serious: No
  Sender: FDA-Public Use
  Company Number: A-US2014-108088

PATIENT
  Age: 40 Year
  Sex: Male

DRUGS (2)
  1. OPSUMIT [Suspect]
     Active Substance: MACITENTAN
     Indication: PULMONARY HYPERTENSION
     Route: 048
  2. REVATIO (SILDENAFIL CITRATE) [Concomitant]

REACTIONS (7)
  - Vomiting [None]
  - Cough [None]
  - Nausea [None]
  - No therapeutic response [None]
  - Walking distance test abnormal [None]
  - Rhinorrhoea [None]
  - Dysphonia [None]
